FAERS Safety Report 6993929-1 (Version None)
Quarter: 2010Q3

REPORT INFORMATION
  Report Type: 
  Country: None (occurrence: None)
  Receive Date: 20100917
  Receipt Date: 20100413
  Transmission Date: 20110219
  Serious: No
  Sender: FDA-Public Use
  Company Number: US-ASTRAZENECA-2010SE16349

PATIENT
  Age: 62 Year
  Sex: Female

DRUGS (3)
  1. SEROQUEL XR [Suspect]
     Indication: SCHIZOAFFECTIVE DISORDER
     Route: 048
     Dates: start: 20100406, end: 20100407
  2. SEROQUEL XR [Suspect]
     Route: 048
     Dates: start: 20100407
  3. KLONOPIN [Concomitant]

REACTIONS (1)
  - FAECAL INCONTINENCE [None]
